FAERS Safety Report 21722008 (Version 1)
Quarter: 2022Q4

REPORT INFORMATION
  Report Type: Report from Study
  Country: US (occurrence: US)
  Receive Date: 20221213
  Receipt Date: 20221213
  Transmission Date: 20230113
  Serious: No
  Sender: FDA-Public Use
  Company Number: US-ABBVIE-22K-163-4482598-00

PATIENT
  Sex: Female

DRUGS (3)
  1. SKYRIZI [Suspect]
     Active Substance: RISANKIZUMAB-RZAA
     Indication: Psoriasis
     Dosage: TIME INTERVAL: 1 TOTAL: WEEK 0 150 MILLIGRAM
     Route: 058
     Dates: start: 20220610, end: 20220610
  2. SKYRIZI [Suspect]
     Active Substance: RISANKIZUMAB-RZAA
     Dosage: WEEK 4 150 MILLIGRAM
     Route: 058
     Dates: start: 20220710
  3. SKYRIZI [Suspect]
     Active Substance: RISANKIZUMAB-RZAA
     Dosage: 150 MILLIGRAM
     Route: 058

REACTIONS (9)
  - Nasopharyngitis [Recovered/Resolved]
  - Illness [Unknown]
  - Psoriasis [Not Recovered/Not Resolved]
  - Arthritis [Unknown]
  - Gait disturbance [Unknown]
  - Nasopharyngitis [Unknown]
  - Unevaluable event [Unknown]
  - Drug ineffective [Unknown]
  - Psoriasis [Unknown]

NARRATIVE: CASE EVENT DATE: 20220101
